FAERS Safety Report 6631582-7 (Version None)
Quarter: 2010Q1

REPORT INFORMATION
  Report Type: 
  Country: None (occurrence: None)
  Receive Date: 20100312
  Receipt Date: 20100310
  Transmission Date: 20100710
  Serious: Yes (Hospitalization, Other)
  Sender: FDA-Public Use
  Company Number: CHPA2010GB04738

PATIENT
  Age: 35 Year
  Sex: Male

DRUGS (1)
  1. TERBINAFINE HYDROCHLORIDE [Suspect]
     Indication: TINEA PEDIS
     Dosage: 1 DF, TID
     Route: 003
     Dates: start: 20090309, end: 20090310

REACTIONS (9)
  - APPLICATION SITE ERYTHEMA [None]
  - APPLICATION SITE REACTION [None]
  - APPLICATION SITE SWELLING [None]
  - APPLICATION SITE VESICLES [None]
  - CELLULITIS [None]
  - GROIN PAIN [None]
  - LYMPHANGITIS [None]
  - MALAISE [None]
  - PAIN IN EXTREMITY [None]
